FAERS Safety Report 5336133-5 (Version None)
Quarter: 2007Q1

REPORT INFORMATION
  Report Type: 
  Country: None (occurrence: None)
  Receive Date: 20070302
  Receipt Date: 20070108
  Transmission Date: 20070707
  Serious: No
  Sender: FDA-Public Use
  Company Number: PHEH2007US00694

PATIENT
  Age: 69 Year
  Sex: Female

DRUGS (1)
  1. ENABLEX [Suspect]
     Indication: HYPERTONIC BLADDER
     Dosage: 7.5 MG, QD, ORAL
     Route: 048
     Dates: start: 20061001, end: 20061201

REACTIONS (3)
  - ABDOMINAL DISTENSION [None]
  - MALAISE [None]
  - OESOPHAGEAL DISORDER [None]
